FAERS Safety Report 6752446-4 (Version None)
Quarter: 2010Q2

REPORT INFORMATION
  Report Type: 
  Country: None (occurrence: None)
  Receive Date: 20100602
  Receipt Date: 20100601
  Transmission Date: 20101027
  Serious: Yes (Death)
  Sender: FDA-Public Use
  Company Number: PL-EISAI INC.-E2090-01192-CLI-PL

PATIENT
  Sex: Male
  Weight: 71.1 kg

DRUGS (10)
  1. ZONISAMIDE [Suspect]
     Indication: EPILEPSY
     Dosage: DOUBLE BLIND
     Route: 048
     Dates: start: 20100429, end: 20100506
  2. DEPAKENE [Concomitant]
     Route: 048
     Dates: start: 20080112
  3. NOOTROPIL [Concomitant]
     Route: 048
     Dates: start: 20080101
  4. HEMOFER [Concomitant]
     Route: 048
     Dates: start: 20090101
  5. BETALOC ZOK 50 [Concomitant]
     Route: 048
     Dates: start: 20070101
  6. MILURIT [Concomitant]
     Dosage: 100MG 3X/WEEK
     Route: 048
     Dates: start: 19970101
  7. ACARD [Concomitant]
     Route: 048
     Dates: start: 20050101
  8. NOLPASE [Concomitant]
     Route: 048
     Dates: start: 20090101
  9. VICEBROL [Concomitant]
     Route: 048
     Dates: start: 19980101
  10. DOXAR [Concomitant]
     Route: 048
     Dates: start: 20020101

REACTIONS (3)
  - CARDIOVASCULAR INSUFFICIENCY [None]
  - PANCREATITIS [None]
  - RENAL FAILURE [None]
